FAERS Safety Report 23499570 (Version 1)
Quarter: 2024Q1

REPORT INFORMATION
  Report Type: Other
  Country: NZ (occurrence: NZ)
  Receive Date: 20240208
  Receipt Date: 20240208
  Transmission Date: 20240409
  Serious: Yes (Other)
  Sender: FDA-Public Use
  Company Number: NZ-TASMAN PHARMA, INC.-2024TSM00031

PATIENT
  Age: 46 Year
  Sex: Male

DRUGS (5)
  1. CLOZAPINE [Suspect]
     Active Substance: CLOZAPINE
  2. EPILIM [Suspect]
     Active Substance: VALPROATE SODIUM
  3. MIRTAZAPINE [Concomitant]
     Active Substance: MIRTAZAPINE
  4. QUETIAPINE [Concomitant]
     Active Substance: QUETIAPINE
  5. LITHIUM CARBONATE [Concomitant]
     Active Substance: LITHIUM CARBONATE

REACTIONS (3)
  - Colon cancer [Unknown]
  - Neutropenia [Unknown]
  - Sepsis [Unknown]
